FAERS Safety Report 8269270-6 (Version None)
Quarter: 2012Q2

REPORT INFORMATION
  Report Type: 
  Country: None (occurrence: None)
  Receive Date: 20120409
  Receipt Date: 20120328
  Transmission Date: 20120825
  Serious: Yes (Hospitalization, Other)
  Sender: FDA-Public Use
  Company Number: US-CELGENEUS-163-21880-12023115

PATIENT
  Sex: Female

DRUGS (8)
  1. ZIAC [Concomitant]
     Route: 065
  2. NORCO [Concomitant]
     Route: 065
  3. REVLIMID [Suspect]
     Dosage: 5 MILLIGRAM
     Route: 048
     Dates: start: 20120131, end: 20120306
  4. HYDROCODONE BITARTRATE AND ACETAMINOPHEN [Concomitant]
     Route: 065
  5. DEXAMETHASONE [Concomitant]
     Route: 065
  6. RISPERIDONE [Concomitant]
     Route: 048
  7. ALLOPURINOL [Concomitant]
     Route: 065
  8. TRAZODONE HCL [Concomitant]
     Route: 065

REACTIONS (3)
  - PYREXIA [None]
  - RASH MACULO-PAPULAR [None]
  - EYE SWELLING [None]
